FAERS Safety Report 22624652 (Version 3)
Quarter: 2024Q1

REPORT INFORMATION
  Report Type: Spontaneous
  Country: US (occurrence: US)
  Receive Date: 20230621
  Receipt Date: 20240112
  Transmission Date: 20240410
  Serious: Yes (Hospitalization, Other)
  Sender: FDA-Public Use
  Company Number: US-SA-SAC20230620001322

PATIENT
  Age: 85 Year
  Sex: Female

DRUGS (1)
  1. DUPIXENT [Suspect]
     Active Substance: DUPILUMAB
     Indication: Dermatitis atopic
     Dosage: 300 MG, QOW
     Route: 058
     Dates: start: 20210225

REACTIONS (5)
  - Pancreatic carcinoma [Unknown]
  - Condition aggravated [Unknown]
  - Metastases to liver [Unknown]
  - Gastrointestinal carcinoma [Unknown]
  - Haematochezia [Unknown]

NARRATIVE: CASE EVENT DATE: 20230601
